FAERS Safety Report 25745611 (Version 1)
Quarter: 2025Q3

REPORT INFORMATION
  Report Type: Spontaneous
  Country: EU (occurrence: EU)
  Receive Date: 20250901
  Receipt Date: 20250901
  Transmission Date: 20251021
  Serious: Yes (Other)
  Sender: SAMSUNG BIOEPIS
  Company Number: None

PATIENT
  Age: 36 Year
  Sex: Male
  Weight: 59 kg

DRUGS (1)
  1. INFLIXIMAB [Suspect]
     Active Substance: INFLIXIMAB
     Indication: Crohn^s disease
     Dosage: 1 CYCLE EVERY 8 WEEKS;
     Route: 042
     Dates: start: 201912

REACTIONS (1)
  - SLE arthritis [Not Recovered/Not Resolved]

NARRATIVE: CASE EVENT DATE: 20250331
